FAERS Safety Report 14211591 (Version 1)
Quarter: 2017Q4

REPORT INFORMATION
  Report Type: Spontaneous
  Country: US (occurrence: None)
  Receive Date: 20171121
  Receipt Date: 20171121
  Transmission Date: 20180321
  Serious: Yes (Hospitalization)
  Sender: FDA-Public Use
  Company Number: None

PATIENT
  Age: 37 Year
  Sex: Male

DRUGS (14)
  1. MYCOPHENOLIC [Concomitant]
     Active Substance: MYCOPHENOLIC ACID
  2. TOBRAMYCIN. [Concomitant]
     Active Substance: TOBRAMYCIN
  3. VALGANCICLOVAR [Concomitant]
  4. RIFAMPIN. [Concomitant]
     Active Substance: RIFAMPIN
  5. SOD. CHLORIDE NEB [Concomitant]
  6. ONDANSETRON [Concomitant]
     Active Substance: ONDANSETRON
  7. ORKAMBI [Concomitant]
     Active Substance: IVACAFTOR\LUMACAFTOR
  8. COLISTIMETHATE 150MG VIAL [Suspect]
     Active Substance: COLISTIMETHATE SODIUM
     Indication: CYSTIC FIBROSIS
     Dosage: ROUTE - NEBULIZE
     Dates: start: 20171114
  9. TACROLIMUS. [Concomitant]
     Active Substance: TACROLIMUS
  10. CONTOUR TEST NEXT [Concomitant]
  11. MICROLET MIS LANCETS [Concomitant]
  12. PREDNISON [Concomitant]
     Active Substance: PREDNISONE
  13. SMZ/TMP DS [Concomitant]
     Active Substance: SULFAMETHOXAZOLE\TRIMETHOPRIM
  14. VENTOLIN HFA AER [Concomitant]

REACTIONS (1)
  - Hospitalisation [None]

NARRATIVE: CASE EVENT DATE: 20171117
